FAERS Safety Report 13282939 (Version 1)
Quarter: 2017Q1

REPORT INFORMATION
  Report Type: Spontaneous
  Country: CA (occurrence: CA)
  Receive Date: 20170301
  Receipt Date: 20170301
  Transmission Date: 20170428
  Serious: Yes (Other)
  Sender: FDA-Public Use
  Company Number: CA-JNJFOC-2010000376

PATIENT
  Sex: Male
  Weight: 104.3 kg

DRUGS (3)
  1. ROGAINE [Suspect]
     Active Substance: MINOXIDIL
     Route: 061
  2. ROGAINE [Suspect]
     Active Substance: MINOXIDIL
     Route: 061
  3. ROGAINE [Suspect]
     Active Substance: MINOXIDIL
     Indication: ALOPECIA
     Dosage: DAILY DOSE TEXT: MORE THAN 1ML TWICE DAILY
     Route: 061
     Dates: start: 20091212, end: 20091230

REACTIONS (3)
  - Tricuspid valve incompetence [Unknown]
  - Incorrect dose administered [Not Recovered/Not Resolved]
  - Heart rate increased [Recovering/Resolving]
